FAERS Safety Report 21039614 (Version 1)
Quarter: 2022Q3

REPORT INFORMATION
  Report Type: Spontaneous
  Country: IN (occurrence: IN)
  Receive Date: 20220704
  Receipt Date: 20220704
  Transmission Date: 20221027
  Serious: Yes (Death, Hospitalization)
  Sender: FDA-Public Use
  Company Number: IN-PFIZER INC-2021516245

PATIENT
  Age: 82 Year
  Sex: Male

DRUGS (2)
  1. DACOMITINIB [Suspect]
     Active Substance: DACOMITINIB
     Dosage: 30 MG, DAILY
     Route: 048
     Dates: start: 20210501
  2. MEGASTY [Concomitant]
     Dosage: 160 MG

REACTIONS (6)
  - Death [Fatal]
  - Diarrhoea [Unknown]
  - Skin disorder [Unknown]
  - Pruritus [Unknown]
  - Skin lesion [Unknown]
  - Diarrhoea [Unknown]
